FAERS Safety Report 10086962 (Version 1)
Quarter: 2014Q2

REPORT INFORMATION
  Report Type: Spontaneous
  Country: PL (occurrence: PL)
  Receive Date: 20140418
  Receipt Date: 20140418
  Transmission Date: 20141212
  Serious: Yes (Other)
  Sender: FDA-Public Use
  Company Number: PL-BAXTER-2014BAX018833

PATIENT
  Age: 57 Year
  Sex: Male

DRUGS (6)
  1. SEVOFLURANE BAXTER [Suspect]
     Indication: MAINTENANCE OF ANAESTHESIA
     Route: 055
  2. MIDAZOLAM [Suspect]
     Indication: ANAESTHETIC PREMEDICATION
     Route: 065
  3. BUPIVACAINE [Suspect]
     Indication: ANAESTHESIA
     Route: 065
  4. PROPOFOL [Suspect]
     Indication: ANAESTHESIA
     Route: 065
  5. THIOPENTONE [Suspect]
     Indication: ANAESTHESIA
     Route: 065
  6. FENTANYL [Suspect]
     Indication: ANAESTHESIA
     Route: 065

REACTIONS (1)
  - Cranial nerve paralysis [Unknown]
